FAERS Safety Report 18919176 (Version 2)
Quarter: 2022Q1

REPORT INFORMATION
  Report Type: Spontaneous
  Country: CA (occurrence: CA)
  Receive Date: 20210220
  Receipt Date: 20220207
  Transmission Date: 20220423
  Serious: Yes (Other)
  Sender: FDA-Public Use
  Company Number: CA-TAKEDA-2021TUS009865

PATIENT
  Sex: Male

DRUGS (9)
  1. MESALAMINE [Suspect]
     Active Substance: MESALAMINE
     Indication: Colitis ulcerative
     Dosage: UNK
     Route: 065
  2. ASACOL [Suspect]
     Active Substance: MESALAMINE
     Indication: Colitis ulcerative
     Dosage: 4.8 GRAM, QD
     Route: 065
  3. MESALAMINE [Suspect]
     Active Substance: MESALAMINE
     Indication: Colitis ulcerative
     Route: 065
  4. ENTYVIO [Suspect]
     Active Substance: VEDOLIZUMAB
     Indication: Colitis ulcerative
     Dosage: UNK
     Route: 065
  5. HYDROCORTISONE [Suspect]
     Active Substance: HYDROCORTISONE
     Indication: Colitis ulcerative
     Dosage: UNK, QD
     Route: 048
  6. CORTIFOAM [Suspect]
     Active Substance: HYDROCORTISONE ACETATE
     Indication: Colitis ulcerative
     Dosage: UNK
     Route: 065
  7. PREDNISONE [Suspect]
     Active Substance: PREDNISONE
     Indication: Colitis ulcerative
     Dosage: 50 MILLIGRAM
     Route: 065
  8. WARFARIN [Suspect]
     Active Substance: WARFARIN
     Indication: Deep vein thrombosis
     Dosage: UNK
     Route: 065
  9. INFLIXIMAB [Suspect]
     Active Substance: INFLIXIMAB
     Indication: Colitis ulcerative
     Dosage: UNK
     Route: 042

REACTIONS (6)
  - Bronchiectasis [Unknown]
  - Condition aggravated [Unknown]
  - Frequent bowel movements [Unknown]
  - Impaired quality of life [Unknown]
  - Weight decreased [Unknown]
  - Drug ineffective [Unknown]
